FAERS Safety Report 5246605-X (Version None)
Quarter: 2007Q1

REPORT INFORMATION
  Report Type: 
  Country: None (occurrence: None)
  Receive Date: 20070222
  Receipt Date: 20070222
  Transmission Date: 20070707
  Serious: Yes (Other)
  Sender: FDA-Public Use
  Company Number: None

PATIENT
  Sex: Female
  Weight: 25 kg

DRUGS (1)
  1. ZANAFLEX [Suspect]
     Indication: MUSCLE SPASTICITY
     Dosage: 2 MG  THREE TIMES DAILY  PO
     Route: 048

REACTIONS (4)
  - ABNORMAL BEHAVIOUR [None]
  - AFFECTIVE DISORDER [None]
  - PSYCHOMOTOR HYPERACTIVITY [None]
  - SLEEP DISORDER [None]
